FAERS Safety Report 5944130-1 (Version None)
Quarter: 2008Q4

REPORT INFORMATION
  Report Type: 
  Country: None (occurrence: None)
  Receive Date: 20081104
  Receipt Date: 20081023
  Transmission Date: 20090506
  Serious: Yes (Hospitalization)
  Sender: FDA-Public Use
  Company Number: 2008BI025287

PATIENT
  Age: 57 Year
  Sex: Male
  Weight: 83.9154 kg

DRUGS (4)
  1. AVONEX [Suspect]
     Indication: MULTIPLE SCLEROSIS
     Dosage: 30 UG;QW;IM
     Route: 030
     Dates: start: 19981001, end: 20030901
  2. AVONEX [Suspect]
     Indication: MULTIPLE SCLEROSIS
     Dosage: 30 UG;QW;IM
     Route: 030
     Dates: start: 20030901
  3. CON MEDS [Concomitant]
  4. PREV MEDS [Concomitant]

REACTIONS (2)
  - FALL [None]
  - UPPER LIMB FRACTURE [None]
